FAERS Safety Report 4506819-0 (Version None)
Quarter: 2004Q4

REPORT INFORMATION
  Report Type: 
  Country: None (occurrence: None)
  Receive Date: 20041122
  Receipt Date: 20041111
  Transmission Date: 20050328
  Serious: Yes (Other)
  Sender: FDA-Public Use
  Company Number: GB-GLAXOSMITHKLINE-B0351298A

PATIENT
  Age: 63 Year
  Sex: Male

DRUGS (6)
  1. SALBUTAMOL [Suspect]
     Indication: ASTHMA
     Dosage: 100MCG AS REQUIRED
     Route: 065
  2. SIMVASTATIN [Suspect]
     Dosage: 25MG PER DAY
     Route: 048
  3. ASACOL [Concomitant]
     Dosage: 400MG PER DAY
     Route: 048
  4. BECLAZONE [Concomitant]
     Dosage: 250MCG PER DAY
  5. DOXEPIN HCL [Concomitant]
     Dosage: 25MG PER DAY
     Route: 048
  6. SEREVENT [Concomitant]
     Dosage: 25MCG PER DAY

REACTIONS (1)
  - PAROTID GLAND ENLARGEMENT [None]
